FAERS Safety Report 4518449-5 (Version None)
Quarter: 2004Q4

REPORT INFORMATION
  Report Type: 
  Country: None (occurrence: None)
  Receive Date: 20041104
  Receipt Date: 20040824
  Transmission Date: 20050328
  Serious: Yes (Other)
  Sender: FDA-Public Use
  Company Number: PHEH2004US09204

PATIENT
  Age: 58 Year
  Sex: Female

DRUGS (5)
  1. ESTRADERM [Suspect]
     Indication: HORMONE REPLACEMENT THERAPY
     Dates: start: 19920101, end: 19970101
  2. MPA (MEDROXYPROGESTERONE ACETATE) [Suspect]
     Indication: HORMONE REPLACEMENT THERAPY
     Dates: start: 19840101, end: 19970101
  3. PROVERA [Suspect]
     Dates: start: 19840101, end: 19970101
  4. PREMPRO [Suspect]
     Dates: start: 19970101, end: 20001101
  5. PREMARIN [Suspect]

REACTIONS (1)
  - BREAST CANCER [None]
